FAERS Safety Report 9370140 (Version 6)
Quarter: 2013Q4

REPORT INFORMATION
  Report Type: Spontaneous
  Country: US (occurrence: US)
  Receive Date: 20130626
  Receipt Date: 20131104
  Transmission Date: 20140711
  Serious: Yes (Hospitalization, Other)
  Sender: FDA-Public Use
  Company Number: US-009507513-1306USA012250

PATIENT
  Sex: Male
  Weight: 146.49 kg

DRUGS (5)
  1. JANUVIA [Suspect]
     Indication: TYPE 2 DIABETES MELLITUS
     Dosage: 100 MG, QD
     Route: 048
     Dates: start: 20080330, end: 20081106
  2. ASPIRIN [Concomitant]
  3. GLIPIZIDE [Concomitant]
  4. ZETIA [Concomitant]
  5. ENALAPRIL MALEATE [Concomitant]

REACTIONS (26)
  - Pancreatic carcinoma [Unknown]
  - Pancreatectomy [Unknown]
  - Splenectomy [Unknown]
  - Abscess [Unknown]
  - Abdominal abscess [Unknown]
  - Pancreatic fistula [Unknown]
  - Abdominal abscess [Recovered/Resolved]
  - Pancreatic fistula [Unknown]
  - Atelectasis [Unknown]
  - Chest tube insertion [Recovered/Resolved]
  - Joint arthroplasty [Unknown]
  - Pleural effusion [Unknown]
  - Peripancreatic fluid collection [Unknown]
  - Empyema [Recovered/Resolved]
  - Hepatic lesion [Unknown]
  - Night sweats [Unknown]
  - Vision blurred [Unknown]
  - Dyspnoea [Unknown]
  - Intervertebral disc space narrowing [Unknown]
  - Colitis [Unknown]
  - Muscular weakness [Unknown]
  - Muscle spasms [Unknown]
  - Weight increased [Unknown]
  - Abdominal pain [Unknown]
  - Arthralgia [Unknown]
  - Back pain [Unknown]
